FAERS Safety Report 8807941 (Version 1)
Quarter: 2012Q4

REPORT INFORMATION
  Report Type: 
  Country: US (occurrence: US)
  Receive Date: 20120925
  Receipt Date: 20120925
  Transmission Date: 20130627
  Serious: Yes (Other)
  Sender: FDA-Public Use
  Company Number: US-JNJFOC-20120908158

PATIENT
  Age: 56 Year
  Sex: Female
  Weight: 130 kg

DRUGS (4)
  1. MS PEPCID AC [Suspect]
     Route: 048
  2. MS PEPCID AC [Suspect]
     Indication: GASTROOESOPHAGEAL REFLUX DISEASE
     Dosage: 1 tablet once
     Route: 048
     Dates: start: 20120913
  3. SIMETHICONE [Suspect]
     Indication: GASTROOESOPHAGEAL REFLUX DISEASE
     Dosage: 4 doses, once
     Route: 048
     Dates: start: 20120913
  4. GAS RELIEF [Suspect]
     Indication: GASTROOESOPHAGEAL REFLUX DISEASE
     Dosage: 2 doses, once
     Route: 048
     Dates: start: 20120913

REACTIONS (1)
  - Chest pain [Not Recovered/Not Resolved]
